FAERS Safety Report 6045441-4 (Version None)
Quarter: 2009Q1

REPORT INFORMATION
  Report Type: 
  Country: None (occurrence: None)
  Receive Date: 20090121
  Receipt Date: 20081218
  Transmission Date: 20090719
  Serious: Yes (Hospitalization)
  Sender: FDA-Public Use
  Company Number: BR-PFIZER INC-2008157793

PATIENT

DRUGS (10)
  1. BLINDED *PLACEBO [Suspect]
     Indication: COLORECTAL CANCER METASTATIC
     Dosage: 37.5 MG, 1X/DAY
     Route: 048
     Dates: start: 20080711
  2. BLINDED SUNITINIB MALATE [Suspect]
     Indication: COLORECTAL CANCER METASTATIC
     Dosage: 37.5 MG, 1X/DAY
     Route: 048
     Dates: start: 20080711
  3. IRINOTECAN HCL [Suspect]
     Indication: COLORECTAL CANCER METASTATIC
     Dosage: 242 MG, EVERY 2 WEEKS
     Route: 042
     Dates: start: 20080711
  4. FLUOROURACIL [Suspect]
     Indication: COLORECTAL CANCER METASTATIC
     Dosage: 538 MG, BOLUS, DAY 1 EVERY 2 WEEKS
     Route: 042
     Dates: start: 20080711
  5. FLUOROURACIL [Suspect]
     Dosage: 3226 MG, 46HR CONTINUOUS INFUSION, EVERY 2 WEEKS
     Route: 042
     Dates: start: 20080711
  6. CALCIUM FOLINATE [Suspect]
     Indication: COLORECTAL CANCER METASTATIC
     Dosage: 269 MG, EVERY 2 WEEKS
     Route: 042
     Dates: start: 20080711
  7. CAPTOPRIL [Concomitant]
     Dosage: UNK
     Route: 048
     Dates: start: 20030101
  8. GLIBENCLAMIDE [Concomitant]
     Dosage: UNK
     Route: 048
     Dates: start: 20030101
  9. OMEPRAZOLE [Concomitant]
     Dosage: UNK
     Route: 048
     Dates: start: 20080708
  10. LOPERAMIDE [Concomitant]
     Dosage: UNK
     Route: 048
     Dates: start: 20080811

REACTIONS (1)
  - JUGULAR VEIN THROMBOSIS [None]
